FAERS Safety Report 6094750-1 (Version None)
Quarter: 2009Q1

REPORT INFORMATION
  Report Type: 
  Country: None (occurrence: None)
  Receive Date: 20090225
  Receipt Date: 20080211
  Transmission Date: 20090719
  Serious: Yes (Hospitalization)
  Sender: FDA-Public Use
  Company Number: LIP09002

PATIENT
  Age: 66 Year
  Sex: Male
  Weight: 73.9363 kg

DRUGS (13)
  1. LIPOFEN [Suspect]
     Indication: BLOOD CHOLESTEROL INCREASED
     Dosage: 150 MG DAILY PO
     Route: 048
     Dates: start: 20090119, end: 20090202
  2. LIPOFEN [Suspect]
     Indication: CORONARY ARTERY DISEASE
     Dosage: 150 MG DAILY PO
     Route: 048
     Dates: start: 20090119, end: 20090202
  3. PROGRAF [Concomitant]
  4. CELLCEPT [Concomitant]
  5. SYNTHROID [Concomitant]
  6. COREG [Concomitant]
  7. FLORINEF [Concomitant]
  8. IRON [Concomitant]
  9. DILTIAZEM [Concomitant]
  10. RENAL-TAB (FOLATE + B-6) [Concomitant]
  11. ALLOPURINOL [Concomitant]
  12. BICITRA [Concomitant]
  13. TYLENOL [Concomitant]

REACTIONS (2)
  - DIVERTICULUM [None]
  - GASTROINTESTINAL HAEMORRHAGE [None]
